FAERS Safety Report 4894179-5 (Version None)
Quarter: 2006Q1

REPORT INFORMATION
  Report Type: 
  Country: None (occurrence: None)
  Receive Date: 20060127
  Receipt Date: 20050919
  Transmission Date: 20060701
  Serious: No
  Sender: FDA-Public Use
  Company Number: US-GLAXOSMITHKLINE-A0574859A

PATIENT
  Age: 72 Year
  Sex: Male

DRUGS (4)
  1. BUPROPION HYDROCHLORIDE [Suspect]
     Indication: DEPRESSION
     Dosage: 150MG TWICE PER DAY
     Route: 048
     Dates: start: 20050907, end: 20050919
  2. GLUCOPHAGE [Concomitant]
  3. PREVACID [Concomitant]
  4. ANTI-CHOLESTEROL MEDICATION [Concomitant]
     Route: 065

REACTIONS (3)
  - ANXIETY [None]
  - INSOMNIA [None]
  - TREMOR [None]
